FAERS Safety Report 7441975-6 (Version None)
Quarter: 2011Q2

REPORT INFORMATION
  Report Type: 
  Country: None (occurrence: None)
  Receive Date: 20110428
  Receipt Date: 20100823
  Transmission Date: 20111010
  Serious: No
  Sender: FDA-Public Use
  Company Number: US-ASTRAZENECA-2010SE39487

PATIENT
  Sex: Male

DRUGS (1)
  1. ZOLMITRIPTAN [Suspect]
     Indication: HEADACHE
     Route: 048

REACTIONS (1)
  - INSOMNIA [None]
